FAERS Safety Report 10954291 (Version 1)
Quarter: 2015Q1

REPORT INFORMATION
  Report Type: Spontaneous
  Country: US (occurrence: US)
  Receive Date: 20150325
  Receipt Date: 20150325
  Transmission Date: 20150721
  Serious: Yes (Death, Hospitalization, Disabling, Other)
  Sender: FDA-Public Use
  Company Number: US-CELGENE-163-21880-14063730

PATIENT
  Age: 74 Year
  Sex: Male

DRUGS (12)
  1. REVLIMID [Suspect]
     Active Substance: LENALIDOMIDE
     Dosage: 5 MILLIGRAM
     Route: 048
     Dates: start: 201304
  2. REVLIMID [Suspect]
     Active Substance: LENALIDOMIDE
     Dosage: 40 MILLIGRAM
     Route: 048
     Dates: start: 201403, end: 20140529
  3. REVLIMID [Suspect]
     Active Substance: LENALIDOMIDE
     Indication: PLASMA CELL MYELOMA
     Route: 048
     Dates: start: 201211
  4. ASA [Concomitant]
     Active Substance: ASPIRIN
     Indication: CORONARY ARTERY DISEASE
     Dosage: 1500 MILLIGRAM
     Route: 048
  5. PRAVASTATIN [Concomitant]
     Active Substance: PRAVASTATIN\PRAVASTATIN SODIUM
     Indication: BLOOD CHOLESTEROL INCREASED
     Dosage: 20 MILLIGRAM
     Route: 048
  6. VITAMIN D [Concomitant]
     Active Substance: CHOLECALCIFEROL
     Indication: VITAMIN SUPPLEMENTATION
     Dosage: 1,000 UNITS
     Route: 048
  7. ZOMETA [Concomitant]
     Active Substance: ZOLEDRONIC ACID
     Indication: OSTEOARTHRITIS
     Route: 050
  8. OMEPRAZOLE. [Concomitant]
     Active Substance: OMEPRAZOLE
     Indication: GASTROOESOPHAGEAL REFLUX DISEASE
     Route: 048
  9. REVLIMID [Suspect]
     Active Substance: LENALIDOMIDE
     Route: 048
     Dates: start: 20140128, end: 2014
  10. ENALAPRIL [Concomitant]
     Active Substance: ENALAPRIL
     Indication: HYPERTENSION
     Route: 048
  11. COUMADIN [Concomitant]
     Active Substance: WARFARIN SODIUM
     Indication: ANTICOAGULANT THERAPY
     Dosage: 81 MILLIGRAM
     Route: 048
  12. NABUMETONE. [Concomitant]
     Active Substance: NABUMETONE
     Indication: PAIN
     Route: 048

REACTIONS (4)
  - Respiratory failure [Fatal]
  - Plasma cell myeloma [Fatal]
  - Drug ineffective [Not Recovered/Not Resolved]
  - Spinal compression fracture [Not Recovered/Not Resolved]

NARRATIVE: CASE EVENT DATE: 201405
